FAERS Safety Report 6794719-5 (Version None)
Quarter: 2010Q2

REPORT INFORMATION
  Report Type: 
  Country: None (occurrence: None)
  Receive Date: 20100624
  Receipt Date: 20100624
  Transmission Date: 20101027
  Serious: Yes (Hospitalization)
  Sender: FDA-Public Use
  Company Number: None

PATIENT
  Sex: Female
  Weight: 85 kg

DRUGS (1)
  1. DILTIAZEM HCL [Suspect]
     Indication: ARRHYTHMIA
     Dosage: 360MG QD PO
     Route: 048

REACTIONS (2)
  - ERYTHEMA MULTIFORME [None]
  - RASH [None]
